FAERS Safety Report 21841773 (Version 1)
Quarter: 2023Q1

REPORT INFORMATION
  Report Type: Spontaneous
  Country: HU (occurrence: HU)
  Receive Date: 20230110
  Receipt Date: 20230110
  Transmission Date: 20230418
  Serious: Yes (Life-Threatening, Other)
  Sender: FDA-Public Use
  Company Number: HU-SUN PHARMACEUTICAL INDUSTRIES LTD-2020R1-262183

PATIENT
  Age: 38 Year
  Sex: Female

DRUGS (1)
  1. CLOZAPINE [Suspect]
     Active Substance: CLOZAPINE
     Indication: Schizophrenia
     Dosage: UNK
     Route: 048

REACTIONS (7)
  - Pericarditis [Recovered/Resolved]
  - Toxicity to various agents [Unknown]
  - Cardiac tamponade [Recovered/Resolved]
  - Intentional overdose [Unknown]
  - Blood pressure decreased [Recovered/Resolved]
  - Hypoperfusion [Recovered/Resolved]
  - Sinus tachycardia [Recovered/Resolved]
